FAERS Safety Report 21935261 (Version 1)
Quarter: 2023Q1

REPORT INFORMATION
  Report Type: Spontaneous
  Country: US (occurrence: US)
  Receive Date: 20230201
  Receipt Date: 20230201
  Transmission Date: 20230417
  Serious: No
  Sender: FDA-Public Use
  Company Number: US-NEUROCRINE BIOSCIENCES INC.-2023NBI00394

PATIENT

DRUGS (2)
  1. INGREZZA [Suspect]
     Active Substance: VALBENAZINE
     Indication: Product used for unknown indication
     Dosage: 60 MILLIGRAM,UNK
     Route: 065
  2. GUANFACINE [Concomitant]
     Active Substance: GUANFACINE
     Dosage: UNKNOWN
     Route: 065

REACTIONS (1)
  - Dizziness [Recovered/Resolved]
